FAERS Safety Report 4980845-X (Version None)
Quarter: 2006Q2

REPORT INFORMATION
  Report Type: 
  Country: None (occurrence: None)
  Receive Date: 20060424
  Receipt Date: 20051123
  Transmission Date: 20061013
  Serious: Yes (Hospitalization, Other)
  Sender: FDA-Public Use
  Company Number: US-MERCK-0511USA04006

PATIENT
  Age: 66 Year
  Sex: Female
  Weight: 68 kg

DRUGS (17)
  1. AMOXICILLIN AND CLAVULANATE POTASSIUM [Concomitant]
     Route: 065
  2. DOXAZOSIN MESYLATE [Concomitant]
     Route: 065
  3. [THERAPY UNSPECIFIED] [Concomitant]
     Route: 065
  4. ESTRADERM [Concomitant]
     Route: 065
  5. HYDROCORTISONE [Concomitant]
     Route: 065
  6. MIRALAX [Concomitant]
     Route: 065
  7. PAXIL [Concomitant]
     Route: 065
  8. PHENTERMINE [Concomitant]
     Route: 065
  9. TIAZAC [Concomitant]
     Route: 065
  10. XENICAL [Concomitant]
     Route: 065
  11. ZELNORM [Concomitant]
     Route: 065
  12. VIOXX [Suspect]
     Indication: NECK PAIN
     Route: 048
     Dates: start: 20000401, end: 20040901
  13. VIOXX [Suspect]
     Route: 048
     Dates: start: 20000401, end: 20040901
  14. VIOXX [Suspect]
     Indication: ARTHRITIS
     Route: 048
     Dates: start: 20000401, end: 20040901
  15. VIOXX [Suspect]
     Route: 048
     Dates: start: 20000401, end: 20040901
  16. BUFFERIN [Concomitant]
     Route: 065
  17. ZITHROMAX [Concomitant]
     Route: 065

REACTIONS (9)
  - AMNESIA [None]
  - BACK PAIN [None]
  - BARTHOLIN'S CYST [None]
  - CEREBROVASCULAR ACCIDENT [None]
  - DIZZINESS [None]
  - EMOTIONAL DISTRESS [None]
  - EYE DISORDER [None]
  - INTESTINAL OBSTRUCTION [None]
  - SCIATICA [None]
